FAERS Safety Report 23314195 (Version 1)
Quarter: 2023Q4

REPORT INFORMATION
  Report Type: Spontaneous
  Country: JP (occurrence: JP)
  Receive Date: 20231219
  Receipt Date: 20231219
  Transmission Date: 20240109
  Serious: No
  Sender: FDA-Public Use
  Company Number: JP-PFIZER INC-PV202300174357

PATIENT
  Sex: Female
  Weight: 16.2 kg

DRUGS (1)
  1. NGENLA [Suspect]
     Active Substance: SOMATROGON-GHLA
     Indication: Growth hormone deficiency
     Dosage: 10 MG, WEEKLY (ONCE A WEEK)
     Route: 058
     Dates: start: 20230710

REACTIONS (1)
  - Injection site pain [Not Recovered/Not Resolved]

NARRATIVE: CASE EVENT DATE: 20230710
